FAERS Safety Report 23785230 (Version 2)
Quarter: 2024Q2

REPORT INFORMATION
  Report Type: Spontaneous
  Country: US (occurrence: None)
  Receive Date: 20240425
  Receipt Date: 20240601
  Transmission Date: 20240716
  Serious: No
  Sender: FDA-Public Use
  Company Number: 2024A096452

PATIENT
  Age: 80 Year
  Sex: Female

DRUGS (1)
  1. BREZTRI [Suspect]
     Active Substance: BUDESONIDE\FORMOTEROL\GLYCOPYRROLATE
     Dosage: TAKES 2 PUFFS IN MORNING IN 2 PUFFS IN THE AFTERNOON160.0UG UNKNOWN
     Route: 055

REACTIONS (8)
  - Visual impairment [Unknown]
  - Gait disturbance [Unknown]
  - Cough [Unknown]
  - Wrong technique in device usage process [Unknown]
  - Device delivery system issue [Unknown]
  - Incorrect dose administered by device [Unknown]
  - Extra dose administered [Unknown]
  - Device use issue [Unknown]
